FAERS Safety Report 6603782 (Version 4)
Quarter: 2014Q3

REPORT INFORMATION
  Report Type: Spontaneous
  Country: FR (occurrence: FR)
  Receive Date: 20080402
  Receipt Date: 20140728
  Transmission Date: 20150326
  Serious: Yes (Hospitalization)
  Sender: FDA-Public Use
  Company Number: FR-RANBAXY-2008US-14097

PATIENT

DRUGS (12)
  1. MYCOPHENOLIC ACID [Suspect]
     Active Substance: MYCOPHENOLIC ACID
     Indication: RENAL TRANSPLANT
     Dosage: 360 MG, QD
     Route: 048
  2. PRAVASTATINE RANBAXY 20MG COMPRIME SECABLE [Suspect]
     Active Substance: PRAVASTATIN\PRAVASTATIN SODIUM
     Indication: DYSLIPIDAEMIA
     Dosage: 20 MG, QD
     Route: 048
  3. TACROLIMUS. [Suspect]
     Active Substance: TACROLIMUS
     Indication: COMPLICATIONS OF TRANSPLANTED KIDNEY
     Dosage: 1 MG, QD
     Route: 048
  4. SODIUM SULFONATE [Concomitant]
     Indication: PRODUCT USED FOR UNKNOWN INDICATION
     Route: 048
  5. ALLOPURINOL RPG 200MG COMPRIME [Suspect]
     Active Substance: ALLOPURINOL
     Indication: GOUT
     Dosage: 200.000000 MG, QD
     Route: 048
  6. ALFUZOSINE RANBAXY LP 10 MG COMPRIME A LIBERATION PROLONGEE [Suspect]
     Active Substance: ALFUZOSIN HYDROCHLORIDE
     Indication: BENIGN PROSTATIC HYPERPLASIA
     Dosage: 10.000000 MG, QD
     Route: 048
  7. ACETYLSALICYLIC ACID [Concomitant]
     Active Substance: ASPIRIN
     Indication: PRODUCT USED FOR UNKNOWN INDICATION
     Route: 048
  8. VERAPAMIL HYDROCHLORIDE. [Suspect]
     Active Substance: VERAPAMIL HYDROCHLORIDE
     Indication: HYPERTENSION
  9. PREDNISOLONE RPG 5MG COMPRIME EFFERVESCENT [Suspect]
     Active Substance: PREDNISOLONE
     Indication: COMPLICATIONS OF TRANSPLANTED KIDNEY
     Dosage: 5.000000 MG, QD
     Route: 048
  10. ESOMEPRAZOLE [Suspect]
     Active Substance: ESOMEPRAZOLE
     Indication: GASTROOESOPHAGEAL REFLUX DISEASE
     Dosage: 40.000000 MG, QD
     Route: 048
  11. ZOLPIDEM [Concomitant]
     Active Substance: ZOLPIDEM\ZOLPIDEM TARTRATE
     Indication: PRODUCT USED FOR UNKNOWN INDICATION
  12. FUROSEMIDE. [Concomitant]
     Active Substance: FUROSEMIDE
     Indication: PRODUCT USED FOR UNKNOWN INDICATION
     Route: 048

REACTIONS (9)
  - Inflammation [Unknown]
  - Vomiting [Unknown]
  - Hypoxia [Unknown]
  - Renal impairment [Unknown]
  - General physical health deterioration [Unknown]
  - Lung disorder [Unknown]
  - Diarrhoea [Unknown]
  - Rales [Unknown]
  - Interstitial lung disease [Unknown]
